FAERS Safety Report 8582653-X (Version None)
Quarter: 2012Q3

REPORT INFORMATION
  Report Type: 
  Country: None (occurrence: None)
  Receive Date: 20120809
  Receipt Date: 20120806
  Transmission Date: 20120928
  Serious: Yes (Other)
  Sender: FDA-Public Use
  Company Number: US-PFIZER INC-2012151047

PATIENT
  Age: 96 Year
  Sex: Male

DRUGS (12)
  1. NAPROXEN [Suspect]
     Dosage: 500 MG, UNK
  2. DIOVAN HCT [Concomitant]
     Dosage: 12.5MG/ 80MG, 1X/DAY
  3. LEVOTHYROXINE [Concomitant]
     Dosage: 0.1 MG, 1X/DAY
  4. XANAX [Concomitant]
     Dosage: 0.25 MG, AS NEEDED
     Route: 048
  5. FLECTOR [Suspect]
     Indication: PAIN IN EXTREMITY
  6. PLAVIX [Concomitant]
     Dosage: 75 MG, 1X/DAY
     Route: 048
  7. LIPITOR [Concomitant]
     Dosage: 10 MG, 1 TAB EVERY OTHER DAY
  8. HYDROXYUREA [Concomitant]
     Dosage: 500 MG, 1X/DAY
     Route: 048
  9. FLECTOR [Suspect]
     Indication: SWELLING
     Dosage: UNK
  10. NAPROXEN [Suspect]
     Dosage: 500 ML, 2X/DAY
     Dates: start: 20120618
  11. FLECTOR [Suspect]
     Indication: ARTHRALGIA
     Dosage: UNK
     Route: 062
     Dates: start: 20120619
  12. ZEGERID [Concomitant]
     Dosage: 40MG/1100MG, 1XDAY
     Route: 048

REACTIONS (8)
  - DRUG INEFFECTIVE [None]
  - ABDOMINAL PAIN UPPER [None]
  - GOUT [None]
  - DIARRHOEA HAEMORRHAGIC [None]
  - LACERATION [None]
  - ABDOMINAL DISCOMFORT [None]
  - CONDITION AGGRAVATED [None]
  - DIARRHOEA [None]
